FAERS Safety Report 15881338 (Version 9)
Quarter: 2019Q2

REPORT INFORMATION
  Report Type: Spontaneous
  Country: US (occurrence: US)
  Receive Date: 20190128
  Receipt Date: 20190513
  Transmission Date: 20190711
  Serious: Yes (Hospitalization)
  Sender: FDA-Public Use
  Company Number: US-ACTELION-A-NJ2019-185440

PATIENT
  Age: 78 Year
  Sex: Female

DRUGS (8)
  1. REMODULIN [Suspect]
     Active Substance: TREPROSTINIL
     Dosage: 22 NG/KG, PER MIN
     Route: 065
  2. REMODULIN [Suspect]
     Active Substance: TREPROSTINIL
     Dosage: 23 NG/KG, PER MIN
     Route: 065
     Dates: start: 20190406
  3. REMODULIN [Suspect]
     Active Substance: TREPROSTINIL
     Dosage: UNK
     Route: 065
     Dates: start: 20190309
  4. REMODULIN [Suspect]
     Active Substance: TREPROSTINIL
     Indication: PRODUCT USED FOR UNKNOWN INDICATION
     Dosage: 15 NG/KG, PER MIN
     Route: 042
     Dates: start: 20190201
  5. FUROSEMIDE. [Concomitant]
     Active Substance: FUROSEMIDE
     Dosage: 2 MG, QD
  6. TRACLEER [Suspect]
     Active Substance: BOSENTAN
     Indication: PULMONARY ARTERIAL HYPERTENSION
     Dosage: 125 MG, BID
     Route: 048
     Dates: start: 20160314
  7. TADALAFIL. [Concomitant]
     Active Substance: TADALAFIL
     Dosage: 40 UNK
  8. TADALAFIL. [Concomitant]
     Active Substance: TADALAFIL
     Dosage: 20 MG, QD
     Route: 048
     Dates: start: 20181024

REACTIONS (18)
  - Fluid retention [Not Recovered/Not Resolved]
  - Fatigue [Unknown]
  - Sinus headache [Unknown]
  - Pain [Unknown]
  - Diarrhoea [Not Recovered/Not Resolved]
  - Dizziness [Unknown]
  - Gingival bleeding [Unknown]
  - Weight increased [Unknown]
  - Chills [Unknown]
  - Epistaxis [Not Recovered/Not Resolved]
  - Peripheral swelling [Not Recovered/Not Resolved]
  - Rheumatoid arthritis [Unknown]
  - Vertigo [Unknown]
  - Oedema peripheral [Unknown]
  - Spinal stenosis [Unknown]
  - Oedema [Recovered/Resolved]
  - Balance disorder [Unknown]
  - Swelling [Unknown]

NARRATIVE: CASE EVENT DATE: 201901
